FAERS Safety Report 19457976 (Version 1)
Quarter: 2021Q2

REPORT INFORMATION
  Report Type: Spontaneous
  Country: US (occurrence: US)
  Receive Date: 20210624
  Receipt Date: 20210624
  Transmission Date: 20210717
  Serious: No
  Sender: FDA-Public Use
  Company Number: US-PFIZER INC-2020447447

PATIENT
  Age: 67 Year
  Sex: Female
  Weight: 68.04 kg

DRUGS (4)
  1. GENOTROPIN [Suspect]
     Active Substance: SOMATROPIN
     Dosage: 0.4 MG, DAILY (ALTERNATE 0.2 AND 0.4 MG DAILY)
     Dates: start: 20140723
  2. GENOTROPIN [Suspect]
     Active Substance: SOMATROPIN
     Dosage: 0.3 MG, DAILY
  3. GENOTROPIN [Suspect]
     Active Substance: SOMATROPIN
     Dosage: 0.2 MG, DAILY (PEN NEEDLE 31 GAUGE)
     Dates: start: 20140723
  4. GENOTROPIN [Suspect]
     Active Substance: SOMATROPIN
     Dosage: 3 MG, DAILY (3MG SHOT A DAY STOMACH AND LEGS ALTERNATE)
     Dates: start: 2014

REACTIONS (4)
  - Device dispensing error [Unknown]
  - Device breakage [Unknown]
  - Drug dose omission by device [Unknown]
  - Device information output issue [Unknown]
